FAERS Safety Report 21226685 (Version 1)
Quarter: 2022Q3

REPORT INFORMATION
  Report Type: Spontaneous
  Country: None (occurrence: US)
  Receive Date: 20220818
  Receipt Date: 20220818
  Transmission Date: 20221027
  Serious: No
  Sender: FDA-Public Use
  Company Number: US-Ascent Pharmaceuticals, Inc.-2131994

PATIENT
  Age: 68 Year
  Sex: Male
  Weight: 70.455 kg

DRUGS (11)
  1. POTASSIUM CITRATE [Suspect]
     Active Substance: POTASSIUM CITRATE
     Indication: Nephrolithiasis
     Route: 048
  2. ALFUZOSIN HYDROCHLORIDE [Concomitant]
     Active Substance: ALFUZOSIN HYDROCHLORIDE
     Route: 065
  3. ATORVASTATIN CALCIUM [Concomitant]
     Active Substance: ATORVASTATIN CALCIUM
     Route: 065
  4. ASPIRIN [Concomitant]
     Active Substance: ASPIRIN
     Route: 065
  5. METAMUCIL [Concomitant]
     Active Substance: PLANTAGO SEED
     Route: 065
  6. One-A-Day mens vitamin [Concomitant]
     Route: 065
  7. GLUCOSAMINE [Concomitant]
     Active Substance: GLUCOSAMINE
     Route: 065
  8. CHONDROITIN [Concomitant]
     Active Substance: CHONDROITIN
     Route: 065
  9. MSM (MOSAENGMO) [Concomitant]
     Active Substance: POLYQUATERNIUM-10 (400 CPS AT 2%)\PROPYLENE GLYCOL
     Route: 065
  10. VITAMIN D3 [Concomitant]
     Active Substance: CHOLECALCIFEROL
     Route: 065
  11. CALCIUM [Concomitant]
     Active Substance: CALCIUM
     Route: 065

REACTIONS (4)
  - Product residue present [Not Recovered/Not Resolved]
  - Off label use [Unknown]
  - Product quality issue [Unknown]
  - Drug ineffective [Unknown]
